FAERS Safety Report 16837899 (Version 1)
Quarter: 2019Q3

REPORT INFORMATION
  Report Type: Spontaneous
  Country: US (occurrence: US)
  Receive Date: 20190923
  Receipt Date: 20190923
  Transmission Date: 20191005
  Serious: Yes (Hospitalization)
  Sender: FDA-Public Use
  Company Number: US-EMCURE PHARMACEUTICALS LTD-2019-EPL-0664

PATIENT
  Age: 39 Year
  Sex: Male

DRUGS (1)
  1. ACETAMINOPHEN. [Suspect]
     Active Substance: ACETAMINOPHEN
     Dosage: OVER 100 GMS

REACTIONS (5)
  - Toxicity to various agents [Recovered/Resolved]
  - Renal tubular injury [Recovering/Resolving]
  - Transaminases increased [Recovered/Resolved]
  - Overdose [Unknown]
  - Acute kidney injury [Recovering/Resolving]
